FAERS Safety Report 4867832-7 (Version None)
Quarter: 2005Q4

REPORT INFORMATION
  Report Type: 
  Country: None (occurrence: None)
  Receive Date: 20051228
  Receipt Date: 20051221
  Transmission Date: 20060501
  Serious: Yes (Hospitalization)
  Sender: FDA-Public Use
  Company Number: US-MERCK-0512USA03385

PATIENT
  Age: 63 Year
  Sex: Male

DRUGS (5)
  1. ZETIA [Suspect]
     Indication: BLOOD CHOLESTEROL
     Route: 048
     Dates: start: 20050601, end: 20051201
  2. ALLOPURINOL [Concomitant]
     Route: 065
  3. PRINIVIL [Concomitant]
     Route: 065
  4. COLCHICINE [Concomitant]
     Route: 065
  5. ATENOLOL [Concomitant]
     Route: 065

REACTIONS (3)
  - BLOOD CREATINE PHOSPHOKINASE INCREASED [None]
  - MYALGIA [None]
  - PYREXIA [None]
